FAERS Safety Report 7356195 (Version 3)
Quarter: 2020Q3

REPORT INFORMATION
  Report Type: Report from Study
  Country: DE (occurrence: DE)
  Receive Date: 20100415
  Receipt Date: 20111123
  Transmission Date: 20201104
  Serious: Yes (Hospitalization)
  Sender: FDA-Public Use
  Company Number: DE-JNJFOC-20100402355

PATIENT
  Age: 26 Year
  Sex: Female
  Weight: 110 kg

DRUGS (6)
  1. GOLIMUMAB [Suspect]
     Active Substance: GOLIMUMAB
     Route: 058
     Dates: start: 20091008
  2. CALCIUM CARBONATE / CHOLECALCIFEROL [Concomitant]
     Route: 048
     Dates: start: 20090921
  3. GOLIMUMAB [Suspect]
     Active Substance: GOLIMUMAB
     Route: 058
     Dates: start: 20100331
  4. PREDNISOLONE. [Concomitant]
     Active Substance: PREDNISOLONE
     Indication: COLITIS ULCERATIVE
     Route: 048
     Dates: start: 20090701
  5. MESALAMINE. [Concomitant]
     Active Substance: MESALAMINE
     Indication: COLITIS ULCERATIVE
     Route: 048
     Dates: start: 200808
  6. GOLIMUMAB [Suspect]
     Active Substance: GOLIMUMAB
     Indication: COLITIS ULCERATIVE
     Route: 058
     Dates: start: 20090821

REACTIONS (4)
  - Lymphadenopathy [Recovered/Resolved]
  - Staphylococcal infection [Recovered/Resolved]
  - Conjunctivitis [Recovered/Resolved]
  - Otitis externa [Recovered/Resolved]

NARRATIVE: CASE EVENT DATE: 20100406
